FAERS Safety Report 4535740-7 (Version None)
Quarter: 2004Q4

REPORT INFORMATION
  Report Type: 
  Country: None (occurrence: None)
  Receive Date: 20041223
  Receipt Date: 20040129
  Transmission Date: 20050328
  Serious: No
  Sender: FDA-Public Use
  Company Number: US-GLAXOSMITHKLINE-A0495762A

PATIENT
  Age: 59 Year
  Sex: Female

DRUGS (3)
  1. FLONASE [Suspect]
     Dosage: 2SPR PER DAY
     Route: 045
     Dates: start: 20010101, end: 20040127
  2. PREMARIN [Concomitant]
  3. CELEBREX [Concomitant]

REACTIONS (2)
  - GASTROENTERITIS VIRAL [None]
  - PHARMACEUTICAL PRODUCT COMPLAINT [None]
